FAERS Safety Report 15766476 (Version 1)
Quarter: 2018Q4

REPORT INFORMATION
  Report Type: Spontaneous
  Country: US (occurrence: US)
  Receive Date: 20181227
  Receipt Date: 20181227
  Transmission Date: 20190205
  Serious: No
  Sender: FDA-Public Use
  Company Number: US-PFIZER INC-2018526508

PATIENT
  Age: 45 Year
  Sex: Female
  Weight: 72.57 kg

DRUGS (1)
  1. EUCRISA [Suspect]
     Active Substance: CRISABOROLE
     Indication: ECZEMA
     Dosage: UNK, 3X/DAY (APPLIED TWICE DAILY IN THE MORNING AND EVENING AFTER GETTING OUT OF THE SHOWER)
     Dates: start: 2018, end: 201812

REACTIONS (3)
  - Skin burning sensation [Unknown]
  - Skin discomfort [Not Recovered/Not Resolved]
  - Condition aggravated [Unknown]
